FAERS Safety Report 23880564 (Version 1)
Quarter: 2024Q2

REPORT INFORMATION
  Report Type: Spontaneous
  Country: US (occurrence: None)
  Receive Date: 20240521
  Receipt Date: 20240521
  Transmission Date: 20240716
  Serious: No
  Sender: FDA-Public Use
  Company Number: None

PATIENT
  Age: 55 Year
  Sex: Female
  Weight: 91.8 kg

DRUGS (5)
  1. NALTREXONE HYDROCHLORIDE [Suspect]
     Active Substance: NALTREXONE HYDROCHLORIDE
     Indication: Autoimmune disorder
     Dosage: OTHER QUANTITY : 100 CAPSULE(S);?
     Route: 048
     Dates: start: 20240419, end: 20240510
  2. NALTREXONE HYDROCHLORIDE [Suspect]
     Active Substance: NALTREXONE HYDROCHLORIDE
     Indication: Fatigue
  3. Epi-Pen [Concomitant]
  4. Symbicort (PRN) [Concomitant]
  5. MULTIVITAMIN [Concomitant]

REACTIONS (2)
  - Hypersensitivity [None]
  - Documented hypersensitivity to administered product [None]

NARRATIVE: CASE EVENT DATE: 20240518
